FAERS Safety Report 6199588-2 (Version None)
Quarter: 2009Q2

REPORT INFORMATION
  Report Type: 
  Country: None (occurrence: None)
  Receive Date: 20090522
  Receipt Date: 20090513
  Transmission Date: 20091009
  Serious: Yes (Life-Threatening, Hospitalization)
  Sender: FDA-Public Use
  Company Number: B0575120A

PATIENT
  Age: 51 Year
  Sex: Female
  Weight: 92 kg

DRUGS (17)
  1. SALBUTAMOL [Suspect]
     Dates: start: 20080201
  2. XIPAMIDE [Suspect]
     Indication: CARDIAC FAILURE
     Dosage: 20MG PER DAY
     Route: 048
     Dates: start: 20080301, end: 20080903
  3. TORSEMIDE [Suspect]
     Route: 065
     Dates: start: 20080701, end: 20080903
  4. PREDNISOLONE [Suspect]
     Indication: HYPEREOSINOPHILIC SYNDROME
     Dosage: 30MG PER DAY
     Route: 048
     Dates: start: 20080301
  5. SPIRONOLACTONE [Concomitant]
     Route: 065
  6. ACETYLSALICYLIC ACID [Concomitant]
     Route: 065
  7. BISOPROLOL [Concomitant]
     Route: 065
  8. COLECALCIFEROL [Concomitant]
     Route: 065
  9. CALCIUM CARBONATE [Concomitant]
     Route: 065
  10. PHENPROCOUMON [Concomitant]
     Route: 065
  11. MAGNESIUM HYDROGEN ASPARTATE [Concomitant]
     Route: 065
  12. PANTOPRAZOLE SODIUM [Concomitant]
     Route: 065
  13. CALCITRIOL [Concomitant]
     Route: 065
  14. BUDESONIDE [Concomitant]
     Route: 065
  15. FORMOTEROL FUMARATE [Concomitant]
     Route: 065
  16. FLUTICASONE PROPIONATE [Concomitant]
     Route: 065
  17. SALMETEROL XINAFOATE [Concomitant]
     Route: 065

REACTIONS (3)
  - BLOOD POTASSIUM DECREASED [None]
  - BLOOD SODIUM DECREASED [None]
  - METABOLIC ALKALOSIS [None]
